FAERS Safety Report 9338622 (Version 4)
Quarter: 2013Q4

REPORT INFORMATION
  Report Type: Spontaneous
  Country: JP (occurrence: JP)
  Receive Date: 20130610
  Receipt Date: 20131221
  Transmission Date: 20140711
  Serious: Yes (Hospitalization)
  Sender: FDA-Public Use
  Company Number: JP-AMGEN-JPNSP2013040422

PATIENT
  Age: 61 Year
  Sex: Female
  Weight: 45 kg

DRUGS (4)
  1. RANMARK [Suspect]
     Indication: METASTASES TO BONE
     Dosage: TOTAL 10 DOSES
     Route: 042
     Dates: start: 201206, end: 201303
  2. PACLITAXEL [Concomitant]
     Indication: METASTASES TO BONE
     Dosage: UNKNOWN
     Route: 042
     Dates: start: 201212, end: 201304
  3. AVASTIN                            /01555201/ [Concomitant]
     Indication: METASTASES TO BONE
     Dosage: UNKNOWN
     Route: 042
     Dates: start: 201212, end: 201304
  4. TS-1 [Concomitant]
     Route: 048
     Dates: start: 201206, end: 201211

REACTIONS (2)
  - Osteomyelitis [Recovered/Resolved]
  - Osteonecrosis of jaw [Recovered/Resolved]
